FAERS Safety Report 7524144-0 (Version None)
Quarter: 2011Q2

REPORT INFORMATION
  Report Type: 
  Country: None (occurrence: None)
  Receive Date: 20110606
  Receipt Date: 20110526
  Transmission Date: 20111010
  Serious: No
  Sender: FDA-Public Use
  Company Number: US-BIOGENIDEC-2010BI024442

PATIENT
  Sex: Female

DRUGS (1)
  1. TYSABRI [Suspect]
     Indication: MULTIPLE SCLEROSIS
     Route: 042
     Dates: start: 20080121

REACTIONS (13)
  - COGNITIVE DISORDER [None]
  - VERTIGO [None]
  - FALL [None]
  - STRESS [None]
  - CENTRAL NERVOUS SYSTEM LESION [None]
  - DIZZINESS [None]
  - PARAESTHESIA [None]
  - NASOPHARYNGITIS [None]
  - AMNESIA [None]
  - COORDINATION ABNORMAL [None]
  - GASTROINTESTINAL DISORDER [None]
  - DISTURBANCE IN ATTENTION [None]
  - BALANCE DISORDER [None]
